FAERS Safety Report 5640047-0 (Version None)
Quarter: 2008Q1

REPORT INFORMATION
  Report Type: 
  Country: None (occurrence: None)
  Receive Date: 20080225
  Receipt Date: 20080212
  Transmission Date: 20080703
  Serious: Yes (Other)
  Sender: FDA-Public Use
  Company Number: 2008-01506

PATIENT
  Age: 33 Year
  Sex: Male

DRUGS (3)
  1. ETOPOSIDE [Suspect]
     Indication: TESTICULAR GERM CELL CANCER
  2. METHYLPREDNISOLONE ACETATE [Suspect]
     Indication: TESTICULAR GERM CELL CANCER
  3. CISPLATIN [Suspect]
     Indication: TESTICULAR GERM CELL CANCER

REACTIONS (1)
  - INTRACRANIAL VENOUS SINUS THROMBOSIS [None]
